FAERS Safety Report 7952755-7 (Version None)
Quarter: 2011Q4

REPORT INFORMATION
  Report Type: 
  Country: None (occurrence: None)
  Receive Date: 20111201
  Receipt Date: 20111125
  Transmission Date: 20120403
  Serious: Yes (Other)
  Sender: FDA-Public Use
  Company Number: US-BAYER-2011-113799

PATIENT
  Age: 44 Year
  Sex: Female
  Weight: 86.168 kg

DRUGS (4)
  1. VITAMIN B-12 [Concomitant]
  2. FISH OIL [Concomitant]
  3. PROBIOTICS [Concomitant]
  4. BETASERON [Suspect]
     Dosage: 1 ML, QOD
     Route: 058

REACTIONS (5)
  - NERVOUS SYSTEM DISORDER [None]
  - SENSORY DISTURBANCE [None]
  - HYPOAESTHESIA ORAL [None]
  - MULTIPLE SCLEROSIS RELAPSE [None]
  - HYPOAESTHESIA [None]
